FAERS Safety Report 24704748 (Version 3)
Quarter: 2024Q4

REPORT INFORMATION
  Report Type: Spontaneous
  Country: US (occurrence: US)
  Receive Date: 20241206
  Receipt Date: 20241211
  Transmission Date: 20250115
  Serious: Yes (Other)
  Sender: BIOGEN
  Company Number: US-BIOGEN-2024BI01286104

PATIENT
  Sex: Male

DRUGS (1)
  1. SKYCLARYS [Suspect]
     Active Substance: OMAVELOXOLONE
     Indication: Friedreich^s ataxia
     Route: 050
     Dates: start: 20231115

REACTIONS (4)
  - Malignant melanoma [Unknown]
  - Postoperative wound infection [Unknown]
  - Friedreich^s ataxia [Unknown]
  - Drug withdrawal syndrome [Unknown]
